FAERS Safety Report 9377550 (Version 4)
Quarter: 2013Q3

REPORT INFORMATION
  Report Type: Spontaneous
  Country: IL (occurrence: IL)
  Receive Date: 20130701
  Receipt Date: 20130905
  Transmission Date: 20140515
  Serious: Yes (Hospitalization, Other)
  Sender: FDA-Public Use
  Company Number: IL-ELI_LILLY_AND_COMPANY-IL201306002251

PATIENT
  Age: 65 Year
  Sex: Male

DRUGS (10)
  1. CIALIS [Suspect]
     Indication: ERECTILE DYSFUNCTION
     Dosage: 5 MG, UNKNOWN
     Route: 048
     Dates: start: 201301, end: 201305
  2. LIPITOR [Concomitant]
  3. LOSARTAN [Concomitant]
  4. GLUCOPHAGE [Concomitant]
  5. XATRAL [Concomitant]
  6. ZOVIRAX                            /00587301/ [Concomitant]
  7. PLAVIX [Concomitant]
     Dosage: 75 MG, QD
  8. CARTIA                             /00002701/ [Concomitant]
  9. BEZAFIBRATE [Concomitant]
  10. MONOLONG [Concomitant]
     Dosage: 40 MG, UNK

REACTIONS (3)
  - Coronary artery occlusion [Recovered/Resolved]
  - Coronary artery disease [Unknown]
  - Angina unstable [Unknown]
